FAERS Safety Report 8102806-4 (Version None)
Quarter: 2012Q1

REPORT INFORMATION
  Report Type: 
  Country: None (occurrence: None)
  Receive Date: 20120201
  Receipt Date: 20120125
  Transmission Date: 20120608
  Serious: Yes (Life-Threatening, Hospitalization)
  Sender: FDA-Public Use
  Company Number: MX-SANOFI-AVENTIS-2011SA017862

PATIENT
  Age: 57 Year
  Sex: Female
  Weight: 79 kg

DRUGS (7)
  1. ALPRAZOLAM [Concomitant]
     Indication: INSOMNIA
     Route: 048
     Dates: start: 20080101
  2. ENOXAPARIN SODIUM [Suspect]
     Indication: THROMBOSIS
     Route: 058
     Dates: start: 20070310, end: 20110801
  3. LOSARTAN POTASSIUM [Concomitant]
     Route: 048
     Dates: start: 20110101
  4. ENOXAPARIN SODIUM [Suspect]
     Route: 058
     Dates: start: 20110801
  5. AMLODIPINE [Concomitant]
     Route: 048
     Dates: start: 20100101, end: 20110101
  6. ALPRAZOLAM [Concomitant]
     Indication: DEPRESSION
     Route: 048
     Dates: start: 20080101
  7. METOPROLOL TARTRATE [Concomitant]
     Route: 048
     Dates: start: 20110101

REACTIONS (6)
  - BRONCHOSPASM [None]
  - SYSTEMIC LUPUS ERYTHEMATOSUS [None]
  - THROMBOSIS [None]
  - INCORRECT DOSE ADMINISTERED [None]
  - HAEMATOLOGICAL MALIGNANCY [None]
  - IRON DEFICIENCY ANAEMIA [None]
